FAERS Safety Report 4887121-4 (Version None)
Quarter: 2006Q1

REPORT INFORMATION
  Report Type: 
  Country: None (occurrence: None)
  Receive Date: 20060120
  Receipt Date: 20050125
  Transmission Date: 20060701
  Serious: Yes (Hospitalization)
  Sender: FDA-Public Use
  Company Number: US-MERCK-0501USA04156

PATIENT
  Age: 50 Year
  Sex: Female
  Weight: 72 kg

DRUGS (8)
  1. DENAVIR [Concomitant]
     Route: 061
  2. VIOXX [Suspect]
     Route: 048
  3. FLEXERIL [Concomitant]
     Route: 048
  4. LORTAB [Concomitant]
     Route: 065
  5. PAXIL [Concomitant]
     Route: 065
  6. XANAX [Concomitant]
     Route: 065
  7. PREMARIN [Concomitant]
     Route: 065
  8. ALLEGRA [Concomitant]
     Route: 065

REACTIONS (15)
  - ARTERIOSCLEROSIS [None]
  - BACK DISORDER [None]
  - CAROTID ARTERY STENOSIS [None]
  - CLOSED HEAD INJURY [None]
  - DRUG HYPERSENSITIVITY [None]
  - DYSPHAGIA [None]
  - FALL [None]
  - FUNGAL INFECTION [None]
  - GASTROOESOPHAGEAL REFLUX DISEASE [None]
  - HEADACHE [None]
  - HYPERTENSION [None]
  - NAUSEA [None]
  - OESOPHAGEAL INFECTION [None]
  - UPPER RESPIRATORY TRACT INFECTION [None]
  - WEIGHT INCREASED [None]
